FAERS Safety Report 14519996 (Version 1)
Quarter: 2018Q1

REPORT INFORMATION
  Report Type: Spontaneous
  Country: US (occurrence: US)
  Receive Date: 20180212
  Receipt Date: 20180212
  Transmission Date: 20180509
  Serious: No
  Sender: FDA-Public Use
  Company Number: US-BAYER-2018-028093

PATIENT
  Age: 93 Year
  Sex: Female
  Weight: 52.15 kg

DRUGS (3)
  1. MIRALAX [Suspect]
     Active Substance: POLYETHYLENE GLYCOL 3350
     Indication: GASTROINTESTINAL DISORDER
     Dosage: 1 DF, QD
     Route: 048
     Dates: start: 20180130
  2. PRESERVISION EYE VITAMIN AND MINERAL SUPPL. [Concomitant]
  3. TYLENOL [Concomitant]
     Active Substance: ACETAMINOPHEN

REACTIONS (4)
  - Off label use [Unknown]
  - Off label use [Unknown]
  - Product use issue [Unknown]
  - Circumstance or information capable of leading to medication error [None]

NARRATIVE: CASE EVENT DATE: 201801
